FAERS Safety Report 17045949 (Version 1)
Quarter: 2019Q4

REPORT INFORMATION
  Report Type: Spontaneous
  Country: US (occurrence: US)
  Receive Date: 20191119
  Receipt Date: 20191119
  Transmission Date: 20200122
  Serious: No
  Sender: FDA-Public Use
  Company Number: US-LUPIN PHARMACEUTICALS INC.-2019-03053

PATIENT
  Age: 76 Year
  Sex: Male

DRUGS (2)
  1. LISINOPRIL. [Concomitant]
     Active Substance: LISINOPRIL
     Indication: PRODUCT USED FOR UNKNOWN INDICATION
     Dosage: 10 MILLIGRAM, QD
     Route: 065
     Dates: start: 20190509
  2. LISINOPRIL AND HYDROCHLOROTHIAZIDE [Suspect]
     Active Substance: HYDROCHLOROTHIAZIDE\LISINOPRIL
     Indication: HYPERTENSION
     Dosage: UNK UNK, QD (10 MG/12.5 MG)
     Route: 048
     Dates: start: 2009, end: 20190508

REACTIONS (3)
  - Dizziness [Recovered/Resolved]
  - Hypotension [Not Recovered/Not Resolved]
  - Vision blurred [Recovered/Resolved]

NARRATIVE: CASE EVENT DATE: 201904
